FAERS Safety Report 25534686 (Version 1)
Quarter: 2025Q3

REPORT INFORMATION
  Report Type: Spontaneous
  Country: US (occurrence: US)
  Receive Date: 20250709
  Receipt Date: 20250709
  Transmission Date: 20251021
  Serious: No
  Sender: BRISTOL-MYERS SQUIBB COMPANY
  Company Number: US-BRISTOL-MYERS SQUIBB COMPANY-2025-096714

PATIENT
  Age: 63 Year
  Sex: Female

DRUGS (1)
  1. ORENCIA [Suspect]
     Active Substance: ABATACEPT
     Indication: Spinal osteoarthritis
     Route: 058
     Dates: start: 202409

REACTIONS (4)
  - Pain [Unknown]
  - Malaise [Unknown]
  - General physical health deterioration [Unknown]
  - Off label use [Unknown]
